FAERS Safety Report 7972498 (Version 2)
Quarter: 2013Q4

REPORT INFORMATION
  Report Type: Spontaneous
  Country: US (occurrence: US)
  Receive Date: 20110603
  Receipt Date: 20131106
  Transmission Date: 20140711
  Serious: Yes (Hospitalization, Other)
  Sender: FDA-Public Use
  Company Number: US-BAYER-201019787NA

PATIENT
  Age: 22 Year
  Sex: Female
  Weight: 42.27 kg

DRUGS (10)
  1. YAZ [Suspect]
     Indication: CONTRACEPTION
     Dosage: UNK
     Route: 048
     Dates: start: 200505, end: 200910
  2. YASMIN [Suspect]
     Indication: CONTRACEPTION
     Dosage: UNK
     Route: 048
     Dates: start: 200505, end: 200910
  3. OCELLA [Suspect]
     Indication: CONTRACEPTION
     Dosage: UNK
     Route: 048
     Dates: start: 200505, end: 200910
  4. ADVIL [Concomitant]
  5. IBUPROFEN [IBUPROFEN] [Concomitant]
     Indication: MIGRAINE
  6. ALBUTEROL [Concomitant]
  7. SINGULAIR [Concomitant]
  8. ADVAIR [Concomitant]
     Indication: ASTHMA
  9. HYDROCODONE [Concomitant]
  10. NEXIUM [Concomitant]

REACTIONS (18)
  - Headache [Not Recovered/Not Resolved]
  - Pain [Not Recovered/Not Resolved]
  - Hyperacusis [Not Recovered/Not Resolved]
  - Visual impairment [Not Recovered/Not Resolved]
  - Scintillating scotoma [Not Recovered/Not Resolved]
  - Visual field defect [Not Recovered/Not Resolved]
  - Vision blurred [Not Recovered/Not Resolved]
  - Photophobia [Not Recovered/Not Resolved]
  - Cholecystitis chronic [Unknown]
  - Gastrooesophageal reflux disease [Unknown]
  - Abdominal pain [Unknown]
  - Chest pain [Unknown]
  - Gallbladder pain [Unknown]
  - Amylase increased [Unknown]
  - Diarrhoea [Unknown]
  - Vomiting [Unknown]
  - Dizziness [Not Recovered/Not Resolved]
  - Vaginal haemorrhage [Unknown]
